FAERS Safety Report 7128233-4 (Version None)
Quarter: 2010Q4

REPORT INFORMATION
  Report Type: 
  Country: None (occurrence: None)
  Receive Date: 20101103
  Receipt Date: 20101025
  Transmission Date: 20110411
  Serious: Yes (Disabling, Other)
  Sender: FDA-Public Use
  Company Number: 2010SP056436

PATIENT
  Age: 51 Year
  Sex: Female

DRUGS (3)
  1. SAPHRIS [Suspect]
     Indication: SCHIZOPHRENIA
     Dosage: 5 MG;BID;SL
     Route: 060
     Dates: start: 20100920
  2. SEROQUEL [Concomitant]
  3. KLONOPIN [Concomitant]

REACTIONS (2)
  - MENTAL DISORDER [None]
  - RASH [None]
